FAERS Safety Report 16340790 (Version 1)
Quarter: 2019Q2

REPORT INFORMATION
  Report Type: Spontaneous
  Country: HU (occurrence: HU)
  Receive Date: 20190522
  Receipt Date: 20190522
  Transmission Date: 20190711
  Serious: Yes (Death)
  Sender: FDA-Public Use
  Company Number: HU-ASTRAZENECA-2019SE74822

PATIENT
  Sex: Male

DRUGS (2)
  1. FULVESTRANT. [Suspect]
     Active Substance: FULVESTRANT
     Indication: BREAST CANCER METASTATIC
     Dosage: 500 MG, UNK, (THE FIRST 3 INJECTION ON EACH 14 DAYS, THEN ON EACH 28 DAYS)
     Route: 030
  2. PALBOCICLIB [Suspect]
     Active Substance: PALBOCICLIB
     Indication: BREAST CANCER METASTATIC
     Dosage: 125 MG, 1X/DAY,3/1 DOSING SCHEMA (THROUGH 21 CONSECUTIVE DAYS WHICH WAS FOLLOWED BY 7 DAYS BREAK)
     Route: 048

REACTIONS (3)
  - Off label use [Fatal]
  - Product use issue [Fatal]
  - Neoplasm progression [Fatal]

NARRATIVE: CASE EVENT DATE: 2018
